FAERS Safety Report 8939177 (Version 1)
Quarter: 2012Q4

REPORT INFORMATION
  Report Type: 
  Country: US (occurrence: US)
  Receive Date: 20121121
  Receipt Date: 20121121
  Transmission Date: 20130627
  Serious: Yes (Death)
  Sender: FDA-Public Use
  Company Number: US-ASTELLAS-1104055

PATIENT
  Sex: Female

DRUGS (9)
  1. AVASTIN [Suspect]
     Indication: LUNG NEOPLASM MALIGNANT
  2. AVASTIN [Suspect]
     Indication: LUNG NEOPLASM MALIGNANT
  3. AVASTIN [Suspect]
     Indication: METASTASES TO LIVER
  4. TARCEVA [Suspect]
     Indication: LUNG NEOPLASM MALIGNANT
  5. TARCEVA [Suspect]
     Indication: LUNG NEOPLASM MALIGNANT
  6. TARCEVA [Suspect]
     Indication: METASTASES TO LIVER
  7. XELODA [Suspect]
     Indication: LUNG NEOPLASM MALIGNANT
  8. XELODA [Suspect]
     Indication: LUNG NEOPLASM MALIGNANT
  9. XELODA [Suspect]
     Indication: METASTASES TO LIVER

REACTIONS (1)
  - Death [Fatal]
